FAERS Safety Report 11815140 (Version 1)
Quarter: 2015Q4

REPORT INFORMATION
  Report Type: Spontaneous
  Country: US (occurrence: US)
  Receive Date: 20151209
  Receipt Date: 20151209
  Transmission Date: 20160305
  Serious: No
  Sender: FDA-Public Use
  Company Number: US-SA-2015SA172441

PATIENT
  Sex: Male

DRUGS (2)
  1. SOLOSTAR [Concomitant]
     Active Substance: DEVICE
     Dates: start: 20151019
  2. TOUJEO [Suspect]
     Active Substance: INSULIN GLARGINE
     Dosage: DOSE:36 UNIT(S)
     Route: 065
     Dates: start: 20151019

REACTIONS (1)
  - Abdominal distension [Unknown]
